FAERS Safety Report 9117044 (Version 1)
Quarter: 2013Q1

REPORT INFORMATION
  Report Type: Spontaneous
  Country: US (occurrence: US)
  Receive Date: 20130208
  Receipt Date: 20130208
  Transmission Date: 20140127
  Serious: Yes (Disabling, Other)
  Sender: FDA-Public Use
  Company Number: US-JNJFOC-20130116157

PATIENT
  Age: 44 None
  Sex: Female
  Weight: 53.07 kg

DRUGS (5)
  1. DURAGESIC [Suspect]
     Indication: POST LAMINECTOMY SYNDROME
     Route: 062
  2. DURAGESIC [Suspect]
     Indication: POST LAMINECTOMY SYNDROME
     Route: 062
     Dates: end: 2009
  3. DURAGESIC [Suspect]
     Indication: POST LAMINECTOMY SYNDROME
     Route: 062
     Dates: start: 2004
  4. DURAGESIC [Suspect]
     Indication: POST LAMINECTOMY SYNDROME
     Dosage: NDC 50458-093-05
     Route: 062
     Dates: start: 2009
  5. FENTANYL TRANSDERMAL SYSTEM [Suspect]
     Indication: POST LAMINECTOMY SYNDROME
     Route: 062

REACTIONS (16)
  - Disability [Unknown]
  - Thyroid disorder [Unknown]
  - Pituitary tumour [Not Recovered/Not Resolved]
  - Migraine [Unknown]
  - Application site haemorrhage [Unknown]
  - Product packaging issue [Unknown]
  - Wrong technique in drug usage process [Unknown]
  - Application site pruritus [Unknown]
  - Application site erosion [Unknown]
  - Breakthrough pain [Unknown]
  - Hyperhidrosis [Unknown]
  - Product quality issue [Unknown]
  - Wrong technique in drug usage process [Unknown]
  - Weight increased [Unknown]
  - Headache [Unknown]
  - Therapeutic response decreased [Unknown]
